FAERS Safety Report 4303976-6 (Version None)
Quarter: 2004Q1

REPORT INFORMATION
  Report Type: 
  Country: None (occurrence: None)
  Receive Date: 20040225
  Receipt Date: 20040219
  Transmission Date: 20041129
  Serious: Yes (Other)
  Sender: FDA-Public Use
  Company Number: CA-ROCHE-359559

PATIENT
  Sex: Male

DRUGS (1)
  1. ACCUTANE [Suspect]
     Indication: DRUG USE FOR UNKNOWN INDICATION
     Route: 048
     Dates: start: 20010615

REACTIONS (9)
  - DRY MOUTH [None]
  - IMPAIRED WORK ABILITY [None]
  - INSOMNIA [None]
  - KERATOCONJUNCTIVITIS SICCA [None]
  - PENIS DISORDER [None]
  - PSYCHIATRIC SYMPTOM [None]
  - PSYCHOTIC DISORDER [None]
  - SKIN BURNING SENSATION [None]
  - SUICIDAL IDEATION [None]
